FAERS Safety Report 7306153-X (Version None)
Quarter: 2011Q1

REPORT INFORMATION
  Report Type: 
  Country: None (occurrence: None)
  Receive Date: 20110222
  Receipt Date: 20110218
  Transmission Date: 20110831
  Serious: Yes (Death, Hospitalization)
  Sender: FDA-Public Use
  Company Number: JP-ABBOTT-11P-087-0706212-00

PATIENT
  Sex: Female

DRUGS (6)
  1. ETIZOLAM [Concomitant]
     Indication: PRODUCT USED FOR UNKNOWN INDICATION
     Dosage: 0.5MG DAILY
  2. CELECOXIB [Concomitant]
     Indication: RHEUMATOID ARTHRITIS
     Dosage: 200MG DAILY
  3. HUMIRA [Suspect]
     Indication: RHEUMATOID ARTHRITIS
     Route: 058
     Dates: start: 20100218, end: 20100830
  4. PREDNISOLONE [Concomitant]
     Indication: RHEUMATOID ARTHRITIS
     Dosage: 5MG DAILY
     Route: 048
  5. REBAMIPIDE [Concomitant]
     Indication: GASTRITIS PROPHYLAXIS
     Dosage: 200MG DAILY
  6. RALOXIFENE HYDROCHLORIDE [Concomitant]
     Indication: OSTEOPOROSIS PROPHYLAXIS
     Dosage: 60MG DAILY
     Dates: start: 20100304

REACTIONS (1)
  - CEREBRAL HAEMORRHAGE [None]
